FAERS Safety Report 18254042 (Version 1)
Quarter: 2020Q3

REPORT INFORMATION
  Report Type: Spontaneous
  Country: US (occurrence: US)
  Receive Date: 20200910
  Receipt Date: 20200910
  Transmission Date: 20201103
  Serious: Yes (Other)
  Sender: FDA-Public Use
  Company Number: US-PFIZER INC-2020350078

PATIENT
  Age: 88 Year
  Sex: Female

DRUGS (1)
  1. ADVIL [Suspect]
     Active Substance: IBUPROFEN
     Dosage: 1 DF, 1X/DAY, (I TOOK ONE AFTER I ATE MY BREAKFAST)
     Route: 048

REACTIONS (2)
  - Choking [Unknown]
  - Vomiting [Unknown]
